FAERS Safety Report 7835185-8 (Version None)
Quarter: 2011Q4

REPORT INFORMATION
  Report Type: 
  Country: None (occurrence: None)
  Receive Date: 20111024
  Receipt Date: 20111013
  Transmission Date: 20120403
  Serious: Yes (Other)
  Sender: FDA-Public Use
  Company Number: GB-BRISTOL-MYERS SQUIBB COMPANY-16145534

PATIENT
  Age: 54 Year
  Sex: Male

DRUGS (11)
  1. QUININE SULFATE [Suspect]
  2. LEVOTHYROXINE SODIUM [Suspect]
  3. CANDESARTAN CILEXETIL [Suspect]
     Dosage: LATER 5 MCG
  4. INSULIN GLARGINE [Suspect]
     Dosage: 1DF:116 UNITS
  5. EXENATIDE [Suspect]
     Dosage: DOSE INCREASED TO 10UG, 2X/DAY AFTER FOUR HOURS. 10MCG,2 IN 1 DAY 5MCG ,2 IN 1 DAY
  6. AMITRIPTYLINE HCL [Suspect]
  7. ROSUVASTATIN [Suspect]
  8. METFORMIN HCL [Suspect]
     Dosage: INTER AND RESTARTED
  9. ASPIRIN [Suspect]
  10. PREGABALIN [Suspect]
  11. GLICLAZIDE [Suspect]

REACTIONS (4)
  - GASTROINTESTINAL DISORDER [None]
  - RENAL FAILURE ACUTE [None]
  - BODY MASS INDEX DECREASED [None]
  - MALAISE [None]
